FAERS Safety Report 5889779-X (Version None)
Quarter: 2008Q3

REPORT INFORMATION
  Report Type: 
  Country: None (occurrence: None)
  Receive Date: 20080919
  Receipt Date: 20080908
  Transmission Date: 20090109
  Serious: Yes (Other)
  Sender: FDA-Public Use
  Company Number: US-ELI_LILLY_AND_COMPANY-US200809002003

PATIENT
  Sex: Male

DRUGS (2)
  1. STRATTERA [Suspect]
     Indication: ATTENTION DEFICIT/HYPERACTIVITY DISORDER
     Dosage: 10 MG, DAILY (1/D)
     Route: 048
     Dates: start: 20061001, end: 20061001
  2. LAMOTRIGINE [Concomitant]
     Indication: CONVULSION
     Dosage: 150 MG, 2/D
     Route: 048
     Dates: start: 20050101

REACTIONS (3)
  - CONVULSION [None]
  - HEAD INJURY [None]
  - VOMITING [None]
